FAERS Safety Report 11380218 (Version 1)
Quarter: 2015Q3

REPORT INFORMATION
  Report Type: Spontaneous
  Country: IT (occurrence: IT)
  Receive Date: 20150814
  Receipt Date: 20150814
  Transmission Date: 20151125
  Serious: Yes (Hospitalization)
  Sender: FDA-Public Use
  Company Number: IT-TEVA-584816ACC

PATIENT
  Age: 59 Year
  Sex: Male

DRUGS (4)
  1. CITARABINA HOSPIRA - 2 G/20 ML SOLUZIONE INIETTABILE - HOSPIRA ITALIA [Suspect]
     Active Substance: CYTARABINE
     Indication: DIFFUSE LARGE B-CELL LYMPHOMA
     Dosage: 12 G TOTAL
     Route: 042
     Dates: start: 20150602, end: 20150603
  2. METOTRESSATO TEVA - 100 MG/ML SOLUZIONE INIETTABILE [Suspect]
     Active Substance: METHOTREXATE SODIUM
     Indication: DIFFUSE LARGE B-CELL LYMPHOMA
     Dosage: 7 G TOTAL
     Route: 042
     Dates: start: 20150601, end: 20150601
  3. MABTHERA [Suspect]
     Active Substance: RITUXIMAB
     Indication: DIFFUSE LARGE B-CELL LYMPHOMA
     Dosage: 700 MG TOTAL
     Route: 042
     Dates: start: 20150531, end: 20150531
  4. TEPADINA [Suspect]
     Active Substance: THIOTEPA
     Indication: DIFFUSE LARGE B-CELL LYMPHOMA
     Dosage: 45 MG TOTAL,POWDER FOR CONCENTRATE FOR SOLUTION FOR INFUSION
     Route: 042
     Dates: start: 20150604, end: 20150604

REACTIONS (3)
  - Escherichia sepsis [Recovered/Resolved]
  - Thrombocytopenia [Recovered/Resolved]
  - Febrile neutropenia [Recovered/Resolved]

NARRATIVE: CASE EVENT DATE: 20150611
